FAERS Safety Report 6576656-4 (Version None)
Quarter: 2010Q1

REPORT INFORMATION
  Report Type: 
  Country: None (occurrence: None)
  Receive Date: 20100210
  Receipt Date: 20100204
  Transmission Date: 20100710
  Serious: Yes (Death, Congenital Anomaly)
  Sender: FDA-Public Use
  Company Number: ZA-SANOFI-AVENTIS-200819358GDDC

PATIENT

DRUGS (4)
  1. INSULIN GLARGINE [Suspect]
     Dosage: DOSE AS USED: 18 IU NOCTE + 5 IU MANE
     Route: 058
     Dates: start: 20050801
  2. INSULIN GLULISINE [Suspect]
     Dosage: 7,3,7 IU
     Route: 058
     Dates: start: 20080501
  3. METFORMIN HYDROCHLORIDE [Concomitant]
     Dosage: DOSE AS USED: UNK
     Route: 064
     Dates: end: 20080501
  4. HUMALOG [Concomitant]
     Dosage: 5-10 IU
     Dates: end: 20080501

REACTIONS (2)
  - DRUG EXPOSURE DURING PREGNANCY [None]
  - TRUNCUS ARTERIOSUS PERSISTENT [None]
